FAERS Safety Report 8467441 (Version 6)
Quarter: 2013Q2

REPORT INFORMATION
  Report Type: Report from Study
  Country: JP (occurrence: JP)
  Receive Date: 20120320
  Receipt Date: 20130605
  Transmission Date: 20140414
  Serious: Yes (Other)
  Sender: FDA-Public Use
  Company Number: JP-JNJFOC-20120307561

PATIENT
  Age: 27 Year
  Sex: Male
  Weight: 78 kg

DRUGS (33)
  1. DUROTEP MT [Suspect]
     Indication: PAIN
     Route: 062
     Dates: start: 20110614, end: 20110720
  2. PAXIL [Suspect]
     Indication: FIBROMYALGIA
     Route: 048
  3. PAXIL [Suspect]
     Indication: DEPRESSION
     Route: 048
  4. PAXIL [Suspect]
     Indication: SLEEP DISORDER THERAPY
     Route: 048
  5. PAXIL [Suspect]
     Indication: PAIN
     Route: 048
  6. SILECE [Suspect]
     Indication: FIBROMYALGIA
     Route: 048
  7. SILECE [Suspect]
     Indication: DEPRESSION
     Route: 048
  8. SILECE [Suspect]
     Indication: SLEEP DISORDER THERAPY
     Route: 048
  9. SILECE [Suspect]
     Indication: PAIN
     Route: 048
  10. DEPAS [Suspect]
     Indication: FIBROMYALGIA
     Route: 048
  11. DEPAS [Suspect]
     Indication: DEPRESSION
     Route: 048
  12. DEPAS [Suspect]
     Indication: SLEEP DISORDER THERAPY
     Route: 048
  13. DEPAS [Suspect]
     Indication: PAIN
     Route: 048
  14. ANAFRANIL [Suspect]
     Indication: FIBROMYALGIA
     Route: 048
     Dates: start: 20110414, end: 20110714
  15. ANAFRANIL [Suspect]
     Indication: DEPRESSION
     Route: 048
     Dates: start: 20110414, end: 20110714
  16. ANAFRANIL [Suspect]
     Indication: SLEEP DISORDER THERAPY
     Route: 048
     Dates: start: 20110414, end: 20110714
  17. ANAFRANIL [Suspect]
     Indication: PAIN
     Route: 048
     Dates: start: 20110414, end: 20110714
  18. TETRAMIDE [Suspect]
     Indication: FIBROMYALGIA
     Route: 048
     Dates: start: 20110704
  19. TETRAMIDE [Suspect]
     Indication: DEPRESSION
     Route: 048
     Dates: start: 20110704
  20. TETRAMIDE [Suspect]
     Indication: SLEEP DISORDER THERAPY
     Route: 048
     Dates: start: 20110704
  21. TETRAMIDE [Suspect]
     Indication: PAIN
     Route: 048
     Dates: start: 20110704
  22. CODEINE PHOSPHATE [Suspect]
     Indication: PAIN
     Route: 048
     Dates: start: 20110222, end: 20110418
  23. CODEINE PHOSPHATE [Suspect]
     Indication: PAIN
     Route: 048
     Dates: start: 20110419, end: 20110613
  24. CODEINE PHOSPHATE [Suspect]
     Indication: PAIN
     Route: 048
     Dates: start: 20101005, end: 20110221
  25. CODEINE PHOSPHATE [Suspect]
     Indication: PAIN
     Route: 048
     Dates: start: 20091201, end: 20100805
  26. CODEINE PHOSPHATE [Suspect]
     Indication: PAIN
     Route: 048
     Dates: start: 20090928, end: 20091130
  27. CODEINE PHOSPHATE [Suspect]
     Indication: PAIN
     Route: 048
     Dates: start: 20100806, end: 20100819
  28. CODEINE PHOSPHATE [Suspect]
     Indication: PAIN
     Route: 048
     Dates: start: 20100820, end: 20101004
  29. CELECOX [Concomitant]
     Indication: PAIN
     Route: 048
     Dates: start: 20101028, end: 20110621
  30. MEXITIL [Concomitant]
     Indication: PAIN
     Route: 048
     Dates: end: 20111129
  31. OMEPRAL [Concomitant]
     Indication: GASTRIC ULCER
     Route: 048
     Dates: start: 20110322, end: 20110816
  32. PRIMPERAN [Concomitant]
     Indication: NAUSEA
     Route: 048
     Dates: start: 20110517, end: 20110614
  33. MAINTATE [Concomitant]
     Indication: VENTRICULAR EXTRASYSTOLES
     Route: 048
     Dates: start: 20110531, end: 20110830

REACTIONS (6)
  - Road traffic accident [Recovering/Resolving]
  - Somnolence [Recovering/Resolving]
  - Haemorrhage subcutaneous [Recovering/Resolving]
  - Contusion [Recovering/Resolving]
  - Contusion [Recovering/Resolving]
  - Erythema [Recovering/Resolving]
